FAERS Safety Report 9135701 (Version 1)
Quarter: 2013Q1

REPORT INFORMATION
  Report Type: Spontaneous
  Country: BR (occurrence: BR)
  Receive Date: 20130304
  Receipt Date: 20130304
  Transmission Date: 20140127
  Serious: Yes (Life-Threatening)
  Sender: FDA-Public Use
  Company Number: BR-ASTRAZENECA-2013SE13850

PATIENT
  Age: 17 Year
  Sex: Female
  Weight: 60 kg

DRUGS (4)
  1. NEXIUM [Suspect]
     Route: 048
     Dates: start: 20130221, end: 20130221
  2. MELATONIN [Suspect]
     Route: 048
     Dates: start: 20130221, end: 20130221
  3. FLUOXETINE [Suspect]
     Route: 048
     Dates: start: 20130221, end: 20130221
  4. POLYVITAMINIC [Suspect]
     Route: 048
     Dates: start: 20130221, end: 20130221

REACTIONS (6)
  - Suicide attempt [Not Recovered/Not Resolved]
  - Psychomotor hyperactivity [Unknown]
  - Mydriasis [Unknown]
  - Tachycardia [Unknown]
  - Serotonin syndrome [Unknown]
  - Confusional state [Unknown]
